FAERS Safety Report 8456106-3 (Version None)
Quarter: 2012Q2

REPORT INFORMATION
  Report Type: 
  Country: None (occurrence: None)
  Receive Date: 20120621
  Receipt Date: 20120618
  Transmission Date: 20120825
  Serious: No
  Sender: FDA-Public Use
  Company Number: PHEH2011US02886

PATIENT
  Sex: Female

DRUGS (11)
  1. TASIGNA [Suspect]
     Dosage: UNK
  2. LUNESTA [Concomitant]
  3. ATIVAN [Concomitant]
  4. LEVOTHYROXINE SODIUM [Concomitant]
  5. CYMBALTA [Concomitant]
  6. ASPIRIN [Concomitant]
  7. NEXIUM [Concomitant]
  8. METFORMIN HYDROCHLORIDE [Concomitant]
  9. TASIGNA [Suspect]
     Indication: LYMPHOCYTIC LEUKAEMIA
     Dosage: 200 MG, BID
     Route: 048
     Dates: start: 20100513
  10. SYNTHROID [Concomitant]
  11. TRIAMTERENE AND HYDROCHLOROTHIAZIDE [Concomitant]

REACTIONS (5)
  - DRY THROAT [None]
  - MASTICATION DISORDER [None]
  - PHARYNGITIS [None]
  - DYSPHAGIA [None]
  - ABDOMINAL PAIN [None]
